FAERS Safety Report 4367464-3 (Version None)
Quarter: 2004Q2

REPORT INFORMATION
  Report Type: 
  Country: None (occurrence: None)
  Receive Date: 20040525
  Receipt Date: 20040511
  Transmission Date: 20050107
  Serious: No
  Sender: FDA-Public Use
  Company Number: CART-10143

PATIENT
  Age: 47 Year
  Sex: Male

DRUGS (1)
  1. CARTICEL [Suspect]
     Indication: ARTHROPATHY
     Dosage: 1 ONCE IS
     Route: 035
     Dates: start: 20010808, end: 20010808

REACTIONS (10)
  - ARTHRITIS BACTERIAL [None]
  - BETA HAEMOLYTIC STREPTOCOCCAL INFECTION [None]
  - FIBROSIS [None]
  - HYPERTROPHIC SCAR [None]
  - JOINT ADHESION [None]
  - JOINT DISLOCATION [None]
  - LOCALISED OSTEOARTHRITIS [None]
  - MENISCUS LESION [None]
  - POST PROCEDURAL COMPLICATION [None]
  - PROCEDURAL COMPLICATION [None]
